FAERS Safety Report 7038503-6 (Version None)
Quarter: 2010Q4

REPORT INFORMATION
  Report Type: 
  Country: None (occurrence: None)
  Receive Date: 20101011
  Receipt Date: 20100526
  Transmission Date: 20110411
  Serious: No
  Sender: FDA-Public Use
  Company Number: US-PFIZER INC-2010066855

PATIENT

DRUGS (1)
  1. NEURONTIN [Suspect]

REACTIONS (3)
  - BLOOD GLUCOSE INCREASED [None]
  - BURNING SENSATION [None]
  - HYPOAESTHESIA [None]
